FAERS Safety Report 5923285-9 (Version None)
Quarter: 2008Q4

REPORT INFORMATION
  Report Type: 
  Country: None (occurrence: None)
  Receive Date: 20081020
  Receipt Date: 20081014
  Transmission Date: 20090506
  Serious: Yes (Death, Hospitalization)
  Sender: FDA-Public Use
  Company Number: US-CELGENEUS-163-20785-08100880

PATIENT
  Sex: Female
  Weight: 80.5 kg

DRUGS (4)
  1. THALOMID [Suspect]
     Route: 048
     Dates: start: 20080911, end: 20080920
  2. MELPHALAN [Suspect]
     Route: 048
     Dates: start: 20080911
  3. PREDNISONE [Suspect]
     Route: 048
     Dates: start: 20080911
  4. ASPIRIN [Concomitant]
     Route: 048
     Dates: start: 20080911

REACTIONS (3)
  - ACUTE RESPIRATORY DISTRESS SYNDROME [None]
  - CLOSTRIDIUM DIFFICILE COLITIS [None]
  - PNEUMONIA [None]
